FAERS Safety Report 9230877 (Version 2)
Quarter: 2013Q2

REPORT INFORMATION
  Report Type: Spontaneous
  Country: CH (occurrence: CH)
  Receive Date: 20130415
  Receipt Date: 20130510
  Transmission Date: 20140414
  Serious: Yes (Other)
  Sender: FDA-Public Use
  Company Number: PHHY2013CH034884

PATIENT
  Sex: 0

DRUGS (3)
  1. FEMARA [Suspect]
     Indication: BREAST CANCER
     Dosage: 2.5 MG, UNK
     Route: 048
     Dates: start: 20120601, end: 20130418
  2. CANCOR [Concomitant]
     Indication: HYPERTONIA
     Dosage: 5 MG, UNK
     Route: 048
  3. CO DIOVAN [Concomitant]
     Indication: HYPERTONIA
     Dosage: 160/25 MG, UNK
     Route: 048

REACTIONS (3)
  - Tenosynovitis [Not Recovered/Not Resolved]
  - Synovitis [Not Recovered/Not Resolved]
  - Trigger finger [Not Recovered/Not Resolved]
